FAERS Safety Report 8099607-2 (Version None)
Quarter: 2012Q1

REPORT INFORMATION
  Report Type: 
  Country: None (occurrence: None)
  Receive Date: 20120131
  Receipt Date: 20120126
  Transmission Date: 20120608
  Serious: Yes (Hospitalization)
  Sender: FDA-Public Use
  Company Number: ZA-PFIZER INC-2012003033

PATIENT
  Sex: Female

DRUGS (1)
  1. VARENICLINE TARTRATE [Suspect]
     Route: 048

REACTIONS (3)
  - HAEMORRHAGE [None]
  - THROMBOCYTOPENIA [None]
  - PLATELET COUNT DECREASED [None]
